FAERS Safety Report 8548311-2 (Version None)
Quarter: 2012Q3

REPORT INFORMATION
  Report Type: 
  Country: None (occurrence: None)
  Receive Date: 20120717
  Receipt Date: 20120623
  Transmission Date: 20120928
  Serious: No
  Sender: FDA-Public Use
  Company Number: 54973 AE # 933

PATIENT
  Age: 68 Year
  Sex: Female

DRUGS (5)
  1. ENBREL [Concomitant]
  2. THYROID TAB [Concomitant]
  3. VICODIN [Concomitant]
  4. HYLAND'S RESTFUL LEGS TABLETS [Suspect]
     Indication: MOVEMENT DISORDER
     Dosage: 2-3 TABS SL 2-3 X NIGHT
  5. HYLAND'S RESTFUL LEGS TABLETS [Suspect]
     Indication: PARAESTHESIA
     Dosage: 2-3 TABS SL 2-3 X NIGHT

REACTIONS (2)
  - BLOOD CREATININE INCREASED [None]
  - BLOOD UREA INCREASED [None]
